FAERS Safety Report 9830367 (Version 2)
Quarter: 2014Q1

REPORT INFORMATION
  Report Type: Spontaneous
  Country: BR (occurrence: BR)
  Receive Date: 20140120
  Receipt Date: 20140120
  Transmission Date: 20141002
  Serious: Yes (Hospitalization, Other)
  Sender: FDA-Public Use
  Company Number: BR-ABBVIE-12P-020-0997161-00

PATIENT
  Sex: Female

DRUGS (4)
  1. HUMIRA [Suspect]
     Indication: CROHN^S DISEASE
     Route: 058
  2. HUMIRA [Suspect]
     Route: 058
  3. FOLIC ACID [Concomitant]
     Indication: VITAMIN SUPPLEMENTATION
  4. NATELE [Concomitant]
     Indication: VITAMIN SUPPLEMENTATION
     Dosage: VITAMIN A/CHOLECALCIFEROL/ VITAMIN E/ VITAMIN C/ VITAMIN B1/

REACTIONS (2)
  - Gastric fistula [Unknown]
  - Abdominal pain upper [Unknown]
